FAERS Safety Report 5482616-7 (Version None)
Quarter: 2007Q4

REPORT INFORMATION
  Report Type: 
  Country: None (occurrence: None)
  Receive Date: 20071011
  Receipt Date: 20070817
  Transmission Date: 20080405
  Serious: No
  Sender: FDA-Public Use
  Company Number: A0671293A

PATIENT
  Age: 49 Year
  Sex: Female

DRUGS (6)
  1. TYKERB [Suspect]
     Indication: BREAST CANCER
     Dosage: 4MG PER DAY
     Route: 048
     Dates: start: 20070801
  2. TAXOL [Concomitant]
  3. CARBOPLATIN [Concomitant]
  4. NEXIUM [Concomitant]
  5. CHANTIX [Concomitant]
  6. VITAMIN [Concomitant]

REACTIONS (2)
  - DIARRHOEA [None]
  - NAUSEA [None]
